FAERS Safety Report 7767968-7 (Version None)
Quarter: 2011Q3

REPORT INFORMATION
  Report Type: 
  Country: None (occurrence: None)
  Receive Date: 20110922
  Receipt Date: 20110113
  Transmission Date: 20111222
  Serious: Yes (Other)
  Sender: FDA-Public Use
  Company Number: US-ASTRAZENECA-2008UW24340

PATIENT
  Age: 587 Month
  Sex: Male
  Weight: 99.8 kg

DRUGS (9)
  1. SEROQUEL [Suspect]
     Indication: ANXIETY DISORDER
     Dosage: 100 AT NIGHT
     Route: 048
     Dates: start: 20020121
  2. SEROQUEL [Suspect]
     Route: 048
     Dates: start: 20030401, end: 20060401
  3. EFFEXOR XR [Concomitant]
     Dosage: 75 EVERY MORNING
     Dates: start: 20020101
  4. SEROQUEL [Suspect]
     Route: 048
     Dates: start: 20030401, end: 20060401
  5. TRAZODONE HCL [Concomitant]
     Dates: start: 20060101
  6. GABITRIL [Concomitant]
     Route: 048
     Dates: start: 20020121
  7. SEROQUEL [Suspect]
     Indication: DEPRESSION
     Dosage: 100 AT NIGHT
     Route: 048
     Dates: start: 20020121
  8. PAXIL [Concomitant]
     Dates: start: 20060101
  9. INDERAL [Concomitant]
     Indication: TREMOR
     Dosage: 10 THREE TIMES A DAY
     Dates: start: 20020121

REACTIONS (3)
  - TYPE 2 DIABETES MELLITUS [None]
  - ERECTILE DYSFUNCTION [None]
  - PNEUMONIA [None]
